FAERS Safety Report 13278751 (Version 2)
Quarter: 2017Q1

REPORT INFORMATION
  Report Type: Report from Study
  Country: None (occurrence: BE)
  Receive Date: 20170228
  Receipt Date: 20170308
  Transmission Date: 20170428
  Serious: Yes (Death, Hospitalization)
  Sender: FDA-Public Use
  Company Number: BE-ABBVIE-17P-013-1851166-00

PATIENT
  Age: 68 Year
  Sex: Male

DRUGS (4)
  1. PLAVIX [Concomitant]
     Active Substance: CLOPIDOGREL BISULFATE
     Indication: PRODUCT USED FOR UNKNOWN INDICATION
  2. DUODOPA [Suspect]
     Active Substance: CARBIDOPA\LEVODOPA
     Indication: PARKINSON^S DISEASE
     Dosage: AM=8ML??CD=2.9ML/HR DURING 16HRS ??ED=3ML
     Route: 050
     Dates: start: 20110103, end: 20110106
  3. DUODOPA [Suspect]
     Active Substance: CARBIDOPA\LEVODOPA
     Dosage: DOSES CONTINUOUSLY MONITORED AND ADAPTED
     Route: 050
     Dates: start: 20110106, end: 20151112
  4. DUODOPA [Suspect]
     Active Substance: CARBIDOPA\LEVODOPA
     Dosage: AM=3ML??CD=3.3ML/HR DURING 16HRS ??ED=2.8ML??ND=2ML/HR DURING 8HRS
     Route: 050
     Dates: start: 20151112

REACTIONS (8)
  - Limb operation [Unknown]
  - On and off phenomenon [Unknown]
  - Posture abnormal [Unknown]
  - Device occlusion [Recovered/Resolved]
  - Freezing phenomenon [Unknown]
  - Throat cancer [Fatal]
  - Palliative care [Not Recovered/Not Resolved]
  - Hypoaesthesia [Unknown]

NARRATIVE: CASE EVENT DATE: 201612
